FAERS Safety Report 4602427-1 (Version None)
Quarter: 2005Q1

REPORT INFORMATION
  Report Type: 
  Country: None (occurrence: None)
  Receive Date: 20050307
  Receipt Date: 20050224
  Transmission Date: 20050727
  Serious: Yes (Other)
  Sender: FDA-Public Use
  Company Number: HQWYE731601MAR05

PATIENT
  Age: 36 Year
  Sex: Male
  Weight: 104.42 kg

DRUGS (2)
  1. EFFEXOR XR [Suspect]
     Indication: DEPRESSION
     Dosage: 75  MG ORAL
     Route: 048
  2. TYLENOL PM (DIPHENHYDRAMINE/PRACETAMOL) [Suspect]
     Indication: INSOMNIA

REACTIONS (4)
  - DRUG INTERACTION [None]
  - JUDGEMENT IMPAIRED [None]
  - MURDER [None]
  - THEFT [None]
